FAERS Safety Report 8415532-9 (Version None)
Quarter: 2012Q2

REPORT INFORMATION
  Report Type: 
  Country: None (occurrence: None)
  Receive Date: 20120530
  Receipt Date: 20100416
  Transmission Date: 20120825
  Serious: Yes (Other)
  Sender: FDA-Public Use
  Company Number: 2010US001294

PATIENT
  Sex: Male

DRUGS (1)
  1. MYCAMINE [Suspect]
     Indication: CENTRAL NERVOUS SYSTEM INFECTION
     Dosage: 150 MG, UID/QD,
     Dates: start: 20100301

REACTIONS (2)
  - CONFUSIONAL STATE [None]
  - DELIRIUM [None]
